FAERS Safety Report 26102413 (Version 1)
Quarter: 2025Q4

REPORT INFORMATION
  Report Type: Spontaneous
  Country: EU (occurrence: EU)
  Receive Date: 20251128
  Receipt Date: 20251128
  Transmission Date: 20260117
  Serious: Yes (Other)
  Sender: AIPING PHARMACEUTICAL
  Company Number: EU-AIPING-2025AILIT00202

PATIENT
  Age: 6 Month
  Sex: Female

DRUGS (7)
  1. PREDNISONE [Suspect]
     Active Substance: PREDNISONE
     Indication: Infantile haemangioma
     Dosage: 2 MG/KG/DAY
     Route: 065
  2. PREDNISONE [Suspect]
     Active Substance: PREDNISONE
     Indication: Multi-organ disorder
  3. PREDNISONE [Suspect]
     Active Substance: PREDNISONE
     Indication: Multi-organ disorder
  4. PREDNISONE [Suspect]
     Active Substance: PREDNISONE
     Indication: Infantile haemangioma
  5. PROPRANOLOL [Concomitant]
     Active Substance: PROPRANOLOL HYDROCHLORIDE
     Dosage: 2.5 MG/KG/DAY
     Route: 065
  6. PROPRANOLOL [Concomitant]
     Active Substance: PROPRANOLOL HYDROCHLORIDE
     Dosage: 1.7 MG/KG/DAY
     Route: 065
  7. URSODIOL [Concomitant]
     Active Substance: URSODIOL
     Route: 065

REACTIONS (3)
  - Cushing^s syndrome [Unknown]
  - Hypothyroidism [Recovered/Resolved]
  - Product use in unapproved indication [Unknown]
